FAERS Safety Report 4357145-4 (Version None)
Quarter: 2004Q2

REPORT INFORMATION
  Report Type: 
  Country: None (occurrence: None)
  Receive Date: 20040511
  Receipt Date: 20040428
  Transmission Date: 20050107
  Serious: Yes (Hospitalization)
  Sender: FDA-Public Use
  Company Number: US-SHR-04-024651

PATIENT
  Age: 36 Year
  Sex: Female
  Weight: 158.7 kg

DRUGS (1)
  1. BETASERON [Suspect]
     Indication: MULTIPLE SCLEROSIS
     Dosage: 8 MIU, EVERY 2D, SUBCUTANEOUS
     Route: 058
     Dates: start: 20040331, end: 20040414

REACTIONS (7)
  - BURNING SENSATION [None]
  - CHEST DISCOMFORT [None]
  - CONSTIPATION [None]
  - HYPERSENSITIVITY [None]
  - MOVEMENT DISORDER [None]
  - SENSATION OF HEAVINESS [None]
  - URTICARIA GENERALISED [None]
